FAERS Safety Report 22324265 (Version 1)
Quarter: 2023Q2

REPORT INFORMATION
  Report Type: Report from Study
  Country: NL (occurrence: NL)
  Receive Date: 20230516
  Receipt Date: 20230516
  Transmission Date: 20230722
  Serious: Yes (Other)
  Sender: FDA-Public Use
  Company Number: NL-ABBVIE-4181401

PATIENT
  Sex: Male

DRUGS (18)
  1. CARBIDOPA\LEVODOPA [Suspect]
     Active Substance: CARBIDOPA\LEVODOPA
     Indication: Parkinson^s disease
     Dosage: MD:10.8ML; CD:4.5 ML/H; ED:4.5ML; CND:4.5ML/H; END:3.5ML;
     Route: 050
  2. CARBIDOPA\LEVODOPA [Suspect]
     Active Substance: CARBIDOPA\LEVODOPA
     Dosage: MD:10.8ML; CD:4.56ML/H; ED:4.5ML; CND:4.5ML/H; END:3.5ML;REMAINS AT 24 HOURS
     Route: 050
  3. CARBIDOPA\LEVODOPA [Suspect]
     Active Substance: CARBIDOPA\LEVODOPA
     Route: 050
  4. CARBIDOPA\LEVODOPA [Suspect]
     Active Substance: CARBIDOPA\LEVODOPA
     Dosage: MD:10.8ML; CD:4.3ML/H; ED:4.5ML; CND:4.4ML/H; END:3.5ML;
     Route: 050
  5. CARBIDOPA\LEVODOPA [Suspect]
     Active Substance: CARBIDOPA\LEVODOPA
     Dosage: REMAINS AT 24 HOURS
     Route: 050
     Dates: start: 20200831
  6. CARBIDOPA\LEVODOPA [Suspect]
     Active Substance: CARBIDOPA\LEVODOPA
     Dosage: MD:10.8ML; CD:4.3ML/H; ED:4.5ML; CND:4.4ML/H; END:3.5ML; REMAINS AT 24 HOURS
     Route: 050
  7. CARBIDOPA\LEVODOPA [Suspect]
     Active Substance: CARBIDOPA\LEVODOPA
     Dosage: MD:10.8ML; CD:4.6ML/H; ED:4.5ML; CND:4.5ML/H; END:3.5ML; REMAINS AT 24 HOURS
     Route: 050
  8. CARBIDOPA\LEVODOPA [Suspect]
     Active Substance: CARBIDOPA\LEVODOPA
     Dosage: MD:10.8ML; CD:4.5ML/H; ED:4.5ML;
     Route: 050
  9. MOVICOLON [Concomitant]
     Active Substance: POLYETHYLENE GLYCOL 3350\POTASSIUM CHLORIDE\SODIUM BICARBONATE\SODIUM CHLORIDE
     Indication: Bowel movement irregularity
     Dosage: DAILY USE
  10. MOVICOLON [Concomitant]
     Active Substance: POLYETHYLENE GLYCOL 3350\POTASSIUM CHLORIDE\SODIUM BICARBONATE\SODIUM CHLORIDE
     Indication: Bowel movement irregularity
     Dosage: DAILY USE
     Route: 065
  11. BENSERAZIDE HYDROCHLORIDE\LEVODOPA [Suspect]
     Active Substance: BENSERAZIDE HYDROCHLORIDE\LEVODOPA
     Indication: Parkinson^s disease
     Dosage: 125MG, 2 TABLETS PER DAY
     Route: 048
     Dates: start: 20190801
  12. BENSERAZIDE HYDROCHLORIDE\LEVODOPA [Suspect]
     Active Substance: BENSERAZIDE HYDROCHLORIDE\LEVODOPA
     Indication: Parkinson^s disease
     Dosage: 125MG, 2 TABLETS PER DAY?MADOPAR DISPERSER
     Route: 048
     Dates: start: 20190801
  13. CLONAZEPAM [Concomitant]
     Active Substance: CLONAZEPAM
     Indication: Sleep disorder
     Dosage: 0.5MG ONCE DAILY, BEFORE GOING TO SLEEP
     Route: 048
     Dates: start: 20210310
  14. CLONAZEPAM [Concomitant]
     Active Substance: CLONAZEPAM
     Indication: Sleep disorder
     Dosage: 0.5MG ONCE DAILY, BEFORE GOING TO SLEEP
     Route: 048
     Dates: start: 20210310
  15. NEUPRO [Concomitant]
     Active Substance: ROTIGOTINE
     Indication: Parkinson^s disease
     Dosage: 8MG/24 HOURS?NEUPRO PLEISTER
     Route: 062
     Dates: start: 20190801
  16. CARBIDOPA\LEVODOPA [Concomitant]
     Active Substance: CARBIDOPA\LEVODOPA
     Indication: Parkinson^s disease
     Dosage: 125MG, 3 TABLETS PER DAY?RET.
     Route: 048
     Dates: start: 20190801
  17. SILVER NITRATE [Concomitant]
     Active Substance: SILVER NITRATE
     Indication: Fibroma
  18. BENSERAZIDE\LEVODOPA [Concomitant]
     Active Substance: BENSERAZIDE\LEVODOPA
     Indication: Parkinson^s disease
     Dosage: 100/25MG, 6 X 2.5 PER DAY
     Route: 048
     Dates: start: 20180801

REACTIONS (29)
  - Drug dependence [Not Recovered/Not Resolved]
  - General physical health deterioration [Not Recovered/Not Resolved]
  - Poor quality sleep [Not Recovered/Not Resolved]
  - Dystonia [Not Recovered/Not Resolved]
  - Freezing phenomenon [Not Recovered/Not Resolved]
  - Unevaluable event [Not Recovered/Not Resolved]
  - Polyneuropathy [Not Recovered/Not Resolved]
  - Fatigue [Not Recovered/Not Resolved]
  - Dyschezia [Not Recovered/Not Resolved]
  - Muscle rigidity [Not Recovered/Not Resolved]
  - Sleep disorder [Not Recovered/Not Resolved]
  - On and off phenomenon [Not Recovered/Not Resolved]
  - Hypophagia [Not Recovered/Not Resolved]
  - Tension [Not Recovered/Not Resolved]
  - Loss of personal independence in daily activities [Not Recovered/Not Resolved]
  - Bradykinesia [Not Recovered/Not Resolved]
  - Therapeutic product effect variable [Not Recovered/Not Resolved]
  - Constipation [Not Recovered/Not Resolved]
  - Feeling cold [Not Recovered/Not Resolved]
  - Hallucination, visual [Not Recovered/Not Resolved]
  - Fibroma [Not Recovered/Not Resolved]
  - Pain [Not Recovered/Not Resolved]
  - Unevaluable event [Not Recovered/Not Resolved]
  - Memory impairment [Not Recovered/Not Resolved]
  - Dyskinesia [Not Recovered/Not Resolved]
  - Stress [Not Recovered/Not Resolved]
  - Psychomotor hyperactivity [Not Recovered/Not Resolved]
  - Feeling of despair [Not Recovered/Not Resolved]
  - Pain in extremity [Not Recovered/Not Resolved]
